FAERS Safety Report 6671050-X (Version None)
Quarter: 2010Q2

REPORT INFORMATION
  Report Type: 
  Country: None (occurrence: None)
  Receive Date: 20100407
  Receipt Date: 20050511
  Transmission Date: 20101027
  Serious: Yes (Hospitalization)
  Sender: FDA-Public Use
  Company Number: JP-PFIZER INC-2005075546

PATIENT
  Age: 53 Year
  Sex: Male

DRUGS (2)
  1. CORTRIL [Suspect]
     Indication: BLOOD CORTISOL
     Route: 065
  2. DECADRON [Suspect]
     Indication: BLOOD CORTICOTROPHIN INCREASED
     Route: 065

REACTIONS (4)
  - BLOOD CORTICOTROPHIN INCREASED [None]
  - GLUCOSE TOLERANCE IMPAIRED [None]
  - HEPATIC FUNCTION ABNORMAL [None]
  - PIGMENTATION DISORDER [None]
